FAERS Safety Report 6088949-8 (Version None)
Quarter: 2009Q1

REPORT INFORMATION
  Report Type: 
  Country: None (occurrence: None)
  Receive Date: 20090224
  Receipt Date: 20090209
  Transmission Date: 20090719
  Serious: No
  Sender: FDA-Public Use
  Company Number: US-BAYER-200910424BCC

PATIENT
  Sex: Female

DRUGS (2)
  1. MIDOL (FORMULATION NOT SPECIFIED) [Suspect]
     Indication: DYSMENORRHOEA
     Dosage: AS USED: 8 DF
     Dates: start: 20090207
  2. MIDOL (FORMULATION NOT SPECIFIED) [Suspect]
     Dosage: AS USED: 3 DF
     Dates: start: 20090209

REACTIONS (4)
  - DIZZINESS [None]
  - DYSMENORRHOEA [None]
  - DYSPNOEA [None]
  - FEELING HOT [None]
